FAERS Safety Report 9794346 (Version 4)
Quarter: 2014Q1

REPORT INFORMATION
  Report Type: Spontaneous
  Country: FI (occurrence: FI)
  Receive Date: 20140102
  Receipt Date: 20140326
  Transmission Date: 20141002
  Serious: Yes (Other)
  Sender: FDA-Public Use
  Company Number: FI-BAYER-2013-156882

PATIENT
  Sex: Female

DRUGS (2)
  1. CANESTEN KOMBI 500 MG + 10 MG/G TABLET [Suspect]
  2. CANESTEN KOMBI 500 MG + 10 MG/G TABLET [Suspect]

REACTIONS (3)
  - Vulvovaginal injury [None]
  - Product shape issue [None]
  - Product solubility abnormal [None]
